FAERS Safety Report 16823011 (Version 1)
Quarter: 2019Q3

REPORT INFORMATION
  Report Type: Spontaneous
  Country: US (occurrence: US)
  Receive Date: 20190918
  Receipt Date: 20190918
  Transmission Date: 20191005
  Serious: Yes (Hospitalization)
  Sender: FDA-Public Use
  Company Number: PHHY2019US212432

PATIENT
  Age: 53 Year
  Sex: Female

DRUGS (3)
  1. PREDNISONE. [Suspect]
     Active Substance: PREDNISONE
     Indication: ACCELERATED IDIOVENTRICULAR RHYTHM
  2. PREDNISONE. [Suspect]
     Active Substance: PREDNISONE
     Indication: VENTRICULAR TACHYCARDIA
     Dosage: 1 MG/KG, UNK
     Route: 065
  3. PREDNISONE. [Suspect]
     Active Substance: PREDNISONE
     Indication: MYOCARDITIS
     Dosage: 50 MG, UNK
     Route: 065

REACTIONS (3)
  - Accelerated idioventricular rhythm [Recovered/Resolved]
  - Product use in unapproved indication [None]
  - Ventricular tachycardia [Recovered/Resolved]
